FAERS Safety Report 10172901 (Version 3)
Quarter: 2014Q4

REPORT INFORMATION
  Report Type: Spontaneous
  Country: JP (occurrence: None)
  Receive Date: 20140513
  Receipt Date: 20141020
  Transmission Date: 20150528
  Serious: Yes (Hospitalization)
  Sender: FDA-Public Use
  Company Number: LOC-01244

PATIENT
  Age: 41 Year
  Sex: Female

DRUGS (6)
  1. TALION /01587402/ ((BEPOTASTINE BESILATE) FORMULATION UNKNOWN [Concomitant]
     Indication: ERYTHEMA
  2. LOCOID [Suspect]
     Active Substance: HYDROCORTISONE BUTYRATE
     Indication: DERMATITIS
     Dosage: UNK, UNKNOWN FREQ., TOPICAL
     Route: 061
     Dates: start: 20140214, end: 20140219
  3. ANTEBATE (BETAMETHASONE BUTYRATE PROPIONATE) FORMULATION UNKNOWN [Concomitant]
  4. FULMETA (MOMETASONE FUROATE)  FORMULATION UNKNOWN [Concomitant]
  5. LIDOMEX (PREDNISOLONE VALEROACETATE) FORMULATION UNKNOWN [Concomitant]
  6. PREDNISOLONE. [Concomitant]
     Active Substance: PREDNISOLONE
     Indication: ERYTHEMA

REACTIONS (2)
  - Dermatitis contact [None]
  - Pigmentation disorder [None]

NARRATIVE: CASE EVENT DATE: 20140217
